FAERS Safety Report 9559605 (Version 1)
Quarter: 2013Q3

REPORT INFORMATION
  Report Type: Spontaneous
  Country: US (occurrence: None)
  Receive Date: 20130909
  Receipt Date: 20130909
  Transmission Date: 20140515
  Serious: Yes (Other)
  Sender: FDA-Public Use
  Company Number: 378464

PATIENT
  Age: 48 Year
  Sex: Female
  Weight: 81.6 kg

DRUGS (2)
  1. VICTOZA (LIRAGLUTIDE) SOLUTION FOR INJECTION, 6MG/ML [Suspect]
     Indication: TYPE 2 DIABETES MELLITUS
     Route: 058
     Dates: start: 20130503, end: 20130503
  2. METFORMIN ER (METFORMIN HYDROCHLORIDE) [Concomitant]

REACTIONS (3)
  - Hypersensitivity [None]
  - Anion gap decreased [None]
  - Blood glucose increased [None]
